FAERS Safety Report 11273440 (Version 1)
Quarter: 2015Q2

REPORT INFORMATION
  Report Type: Spontaneous
  Country: US (occurrence: None)
  Receive Date: 20150625
  Receipt Date: 20150625
  Transmission Date: 20150821
  Serious: No
  Sender: FDA-Public Use
  Company Number: A-US2015-114122

PATIENT
  Age: 81 Year
  Sex: Female

DRUGS (1)
  1. OPSUMIT [Suspect]
     Active Substance: MACITENTAN
     Indication: PULMONARY HYPERTENSION
     Route: 048
     Dates: start: 20150219

REACTIONS (10)
  - Eye pruritus [None]
  - Rhinorrhoea [None]
  - Hypoacusis [None]
  - Eye swelling [None]
  - Eye irritation [None]
  - Oropharyngeal pain [None]
  - Peripheral swelling [None]
  - Ocular hyperaemia [None]
  - Oedema [None]
  - Pruritus generalised [None]

NARRATIVE: CASE EVENT DATE: 201502
